FAERS Safety Report 7516724-3 (Version None)
Quarter: 2011Q2

REPORT INFORMATION
  Report Type: 
  Country: None (occurrence: None)
  Receive Date: 20110601
  Receipt Date: 20110524
  Transmission Date: 20111010
  Serious: Yes (Other)
  Sender: FDA-Public Use
  Company Number: FR-BAXTER-2011BH017972

PATIENT

DRUGS (4)
  1. CORTICOSTEROIDS [Suspect]
     Indication: PROPHYLAXIS AGAINST GRAFT VERSUS HOST DISEASE
     Route: 065
  2. METHOTREXATE [Suspect]
     Indication: PROPHYLAXIS AGAINST GRAFT VERSUS HOST DISEASE
     Route: 065
  3. CYCLOPHOSPHAMIDE [Suspect]
     Indication: BONE MARROW CONDITIONING REGIMEN
     Route: 065
  4. ANTI-THYMOCYTE GLOBULIN NOS [Concomitant]
     Indication: BONE MARROW CONDITIONING REGIMEN
     Route: 065

REACTIONS (1)
  - OSTEONECROSIS [None]
